FAERS Safety Report 4413038-5 (Version None)
Quarter: 2004Q3

REPORT INFORMATION
  Report Type: 
  Country: None (occurrence: None)
  Receive Date: 20040727
  Receipt Date: 20040722
  Transmission Date: 20050211
  Serious: Yes (Other)
  Sender: FDA-Public Use
  Company Number: S04-USA-04302-01

PATIENT
  Age: 91 Year
  Sex: Female

DRUGS (11)
  1. NAMENDA [Suspect]
     Indication: DEMENTIA ALZHEIMER'S TYPE
     Dosage: 15 MG QD PO
     Route: 048
     Dates: end: 20040622
  2. NAMENDA [Suspect]
     Indication: DEMENTIA ALZHEIMER'S TYPE
     Dosage: 5 MG QD PO
     Route: 048
     Dates: start: 20040601
  3. NAMENDA [Suspect]
     Indication: DEMENTIA ALZHEIMER'S TYPE
     Dosage: 10 MG QD PO
     Route: 048
  4. AVANDIA [Concomitant]
  5. LASIK [Concomitant]
  6. LANOXIN [Concomitant]
  7. MIACALCIN [Concomitant]
  8. PILOCARPINE [Concomitant]
  9. PRAVACHOL [Concomitant]
  10. SPIRONOLACTONE [Concomitant]
  11. ZOLOFT [Concomitant]

REACTIONS (1)
  - PARKINSONISM [None]
